FAERS Safety Report 7207934-3 (Version None)
Quarter: 2010Q4

REPORT INFORMATION
  Report Type: 
  Country: None (occurrence: None)
  Receive Date: 20101221
  Receipt Date: 20101208
  Transmission Date: 20110411
  Serious: Yes (Hospitalization)
  Sender: FDA-Public Use
  Company Number: 020808

PATIENT
  Sex: Female
  Weight: 68 kg

DRUGS (3)
  1. CIMZIA [Suspect]
     Indication: CROHN'S DISEASE
     Dosage: 400 MG 1X/WEEKS SUBCUTANEOUS; 200 MG 1X/2 WEEKS, SBUCUTANEOUS
     Route: 058
     Dates: start: 20091101, end: 20100901
  2. CIMZIA [Suspect]
     Indication: CROHN'S DISEASE
     Dosage: 400 MG 1X/WEEKS SUBCUTANEOUS; 200 MG 1X/2 WEEKS, SBUCUTANEOUS
     Route: 058
     Dates: start: 20100901, end: 20101013
  3. ENTOCORT EC [Concomitant]

REACTIONS (7)
  - ABDOMINAL ABSCESS [None]
  - ABDOMINAL PAIN [None]
  - CHILLS [None]
  - DIARRHOEA [None]
  - GASTROINTESTINAL PERFORATION [None]
  - PYREXIA [None]
  - STAPHYLOCOCCUS TEST POSITIVE [None]
